FAERS Safety Report 13547947 (Version 2)
Quarter: 2017Q2

REPORT INFORMATION
  Report Type: Report from Study
  Country: None (occurrence: AT)
  Receive Date: 20170516
  Receipt Date: 20170615
  Transmission Date: 20170830
  Serious: Yes (Death, Other)
  Sender: FDA-Public Use
  Company Number: AT-ABBVIE-17K-009-1974867-00

PATIENT
  Sex: Male

DRUGS (2)
  1. DUODOPA [Suspect]
     Active Substance: CARBIDOPA\LEVODOPA
     Route: 050
     Dates: start: 20140805, end: 20170608
  2. DUODOPA [Suspect]
     Active Substance: CARBIDOPA\LEVODOPA
     Indication: PARKINSON^S DISEASE
     Dosage: 16 H THERAPY: ??MD: 9 ML??CR DAYTIME 1: 3.7 ML/H??CR DAYTIME2: 3.3 ML/H??ED: 1.5 ML
     Route: 050
     Dates: start: 20130912

REACTIONS (2)
  - Pneumonia [Fatal]
  - Device dislocation [Not Recovered/Not Resolved]
